FAERS Safety Report 7200976-3 (Version None)
Quarter: 2010Q4

REPORT INFORMATION
  Report Type: 
  Country: None (occurrence: None)
  Receive Date: 20101228
  Receipt Date: 20101223
  Transmission Date: 20110411
  Serious: Yes (Other)
  Sender: FDA-Public Use
  Company Number: GB-MERCK-1012GBR00097

PATIENT
  Age: 71 Year
  Sex: Female
  Weight: 65 kg

DRUGS (14)
  1. JANUVIA [Suspect]
     Indication: DIABETES MELLITUS
     Route: 048
     Dates: start: 20101028, end: 20101204
  2. AMITRIPTYLINE HYDROCHLORIDE [Concomitant]
     Route: 065
  3. ASPIRIN [Concomitant]
     Route: 065
  4. ATENOLOL [Concomitant]
     Route: 065
  5. ACETAMINOPHEN AND CODEINE PHOSPHATE [Concomitant]
     Indication: PAIN
     Route: 065
  6. DIPYRIDAMOLE [Concomitant]
     Route: 065
  7. FELODIPINE [Concomitant]
     Route: 065
  8. GLICLAZIDE [Concomitant]
     Route: 065
  9. LISINOPRIL [Concomitant]
     Route: 048
  10. METFORMIN [Concomitant]
     Indication: DIABETES MELLITUS
     Route: 065
  11. QUININE BISULFATE [Concomitant]
     Route: 065
  12. SIMVASTATIN [Concomitant]
     Route: 048
  13. SOLIFENACIN SUCCINATE [Concomitant]
     Route: 065
  14. TEMAZEPAM [Concomitant]
     Route: 065

REACTIONS (3)
  - ERYTHEMA [None]
  - RASH [None]
  - SKIN EXFOLIATION [None]
